FAERS Safety Report 6526231-2 (Version None)
Quarter: 2009Q4

REPORT INFORMATION
  Report Type: 
  Country: None (occurrence: None)
  Receive Date: 20091228
  Receipt Date: 20091208
  Transmission Date: 20100525
  Serious: Yes (Life-Threatening, Hospitalization)
  Sender: FDA-Public Use
  Company Number: 20091125

PATIENT
  Sex: Male
  Weight: 75 kg

DRUGS (4)
  1. ALINIA [Suspect]
     Indication: CRYPTOSPORIDIOSIS INFECTION
     Dosage: 500 MG PO BID X 3 DAYS
     Route: 048
     Dates: start: 20091119, end: 20091122
  2. DAPSONE (DIAMINODIPHENISULFONE) [Concomitant]
  3. ADDERALL 10 [Concomitant]
  4. H1N1 VACCINE [Concomitant]

REACTIONS (2)
  - PNEUMONIA STAPHYLOCOCCAL [None]
  - TOXIC EPIDERMAL NECROLYSIS [None]
